FAERS Safety Report 9871338 (Version 1)
Quarter: 2014Q1

REPORT INFORMATION
  Report Type: Spontaneous
  Country: US (occurrence: US)
  Receive Date: 20140205
  Receipt Date: 20140205
  Transmission Date: 20141002
  Serious: No
  Sender: FDA-Public Use
  Company Number: US-009507513-1401USA011187

PATIENT
  Sex: Male

DRUGS (3)
  1. VYTORIN [Suspect]
     Indication: BLOOD CHOLESTEROL INCREASED
     Dosage: 10/10MG (ALSO REPORTED AS 10/40MG)
     Route: 048
  2. ZETIA [Suspect]
     Indication: BLOOD CHOLESTEROL
     Route: 048
  3. ZOCOR [Suspect]
     Indication: BLOOD CHOLESTEROL
     Route: 048

REACTIONS (3)
  - Myopathy [Recovering/Resolving]
  - Blood cholesterol increased [Recovering/Resolving]
  - Blood triglycerides abnormal [Recovering/Resolving]
